FAERS Safety Report 11108205 (Version 1)
Quarter: 2015Q2

REPORT INFORMATION
  Report Type: Spontaneous
  Country: CA (occurrence: CA)
  Receive Date: 20150512
  Receipt Date: 20150512
  Transmission Date: 20150821
  Serious: Yes (Hospitalization, Other)
  Sender: FDA-Public Use
  Company Number: PHHY2015CA054255

PATIENT
  Sex: Female

DRUGS (4)
  1. TELMISARTAN SANDOZ [Suspect]
     Active Substance: TELMISARTAN
     Indication: HYPERTENSION
     Dosage: 40 MG, QD
     Route: 048
  2. OMNARIS [Concomitant]
     Active Substance: CICLESONIDE
     Indication: PRODUCT USED FOR UNKNOWN INDICATION
     Dosage: 1 OT, QD
     Route: 045
  3. DIAMICRON [Concomitant]
     Active Substance: GLICLAZIDE
     Indication: PRODUCT USED FOR UNKNOWN INDICATION
     Dosage: 30 MG, QD
     Route: 065
     Dates: start: 2013
  4. REACTIN//CETIRIZINE HYDROCHLORIDE [Concomitant]
     Indication: PRODUCT USED FOR UNKNOWN INDICATION
     Dosage: 10 MG, QD
     Route: 065
     Dates: start: 2013

REACTIONS (6)
  - Anaphylactic shock [Unknown]
  - Swelling face [Unknown]
  - Flushing [Unknown]
  - Asthma [Not Recovered/Not Resolved]
  - Pharyngeal oedema [Unknown]
  - Dyspnoea [Unknown]
